FAERS Safety Report 7970174-4 (Version None)
Quarter: 2011Q4

REPORT INFORMATION
  Report Type: 
  Country: None (occurrence: None)
  Receive Date: 20111122
  Receipt Date: 20110805
  Transmission Date: 20120403
  Serious: No
  Sender: FDA-Public Use
  Company Number: PHEH2011US01007

PATIENT

DRUGS (1)
  1. GILENYA [Suspect]
     Dosage: 0.5 MG, UNK, ORAL
     Route: 048
     Dates: start: 20110805

REACTIONS (7)
  - CHEST DISCOMFORT [None]
  - DIZZINESS [None]
  - SOMNOLENCE [None]
  - HEADACHE [None]
  - BLOOD PRESSURE DECREASED [None]
  - FATIGUE [None]
  - HEART RATE DECREASED [None]
